FAERS Safety Report 15781043 (Version 1)
Quarter: 2018Q4

REPORT INFORMATION
  Report Type: Spontaneous
  Country: US (occurrence: US)
  Receive Date: 20181226
  Receipt Date: 20181226
  Transmission Date: 20190205
  Serious: No
  Sender: FDA-Public Use
  Company Number: None

PATIENT

DRUGS (2)
  1. PHENYLEPHRINE [Suspect]
     Active Substance: PHENYLEPHRINE\PHENYLEPHRINE HYDROCHLORIDE
     Dosage: ?          OTHER ROUTE:INJECTABLE 10ML SYRINGES?
  2. PHENYLEPHRINE HCL [Suspect]
     Active Substance: PHENYLEPHRINE HYDROCHLORIDE
     Dosage: ?          OTHER ROUTE:INJECTABLE  SYRINGE?

REACTIONS (3)
  - Product packaging confusion [None]
  - Product label confusion [None]
  - Product distribution issue [None]
